FAERS Safety Report 5240349-6 (Version None)
Quarter: 2007Q1

REPORT INFORMATION
  Report Type: 
  Country: None (occurrence: None)
  Receive Date: 20070219
  Receipt Date: 20070205
  Transmission Date: 20070707
  Serious: Yes (Other)
  Sender: FDA-Public Use
  Company Number: PHRM2007FR00738

PATIENT
  Age: 56 Year
  Sex: Female

DRUGS (3)
  1. FEMARA [Suspect]
     Route: 048
     Dates: start: 20050701
  2. DIDRONEL [Concomitant]
     Indication: OSTEOPOROSIS
  3. CALCIUM [Concomitant]
     Indication: OSTEOPOROSIS

REACTIONS (3)
  - ECZEMA [None]
  - PURPURA [None]
  - VASCULITIS [None]
